FAERS Safety Report 9246868 (Version 2)
Quarter: 2013Q2

REPORT INFORMATION
  Report Type: Spontaneous
  Country: DE (occurrence: DE)
  Receive Date: 20130422
  Receipt Date: 20130528
  Transmission Date: 20140414
  Serious: Yes (Death, Other)
  Sender: FDA-Public Use
  Company Number: DE-B.I. PHARMACEUTICALS,INC./RIDGEFIELD-2013-DE-01125DE

PATIENT
  Age: 86 Year
  Sex: Male

DRUGS (13)
  1. PRADAXA [Suspect]
     Indication: ATRIAL FLUTTER
     Dates: start: 20130306, end: 20130311
  2. MOXONIDIN [Concomitant]
     Dosage: 0.4 MG
     Route: 048
  3. TORASEMID [Concomitant]
     Dosage: 25 MG
     Route: 048
  4. BISOPROLOL [Concomitant]
     Dosage: 5 MG
     Route: 048
  5. ASS [Concomitant]
     Dosage: 50 MG
     Route: 048
  6. RAMIPRIL [Concomitant]
     Dosage: 20 MG
     Route: 048
  7. AMLODIPIN [Concomitant]
     Dosage: 10 MG
     Route: 048
  8. DIGITOXIN [Concomitant]
     Dosage: 0.07 MG
     Route: 048
  9. ACARBOSE [Concomitant]
     Dosage: 150 MG
     Route: 048
  10. GLIBENCLAMID [Concomitant]
     Dosage: 7 MG
     Route: 048
  11. XIPAMID [Concomitant]
     Dosage: 20 MG
     Route: 048
  12. MINOXIDIL [Concomitant]
     Dosage: 2.5 MG
     Route: 048
  13. NEUREXAN [Concomitant]
     Dosage: 3 ANZ

REACTIONS (8)
  - Myocardial infarction [Fatal]
  - Steal syndrome [Unknown]
  - Gastrointestinal haemorrhage [Unknown]
  - Haemorrhagic anaemia [Unknown]
  - Coagulopathy [Unknown]
  - Haemoptysis [Unknown]
  - Haematuria [Unknown]
  - Haematuria [Unknown]
